FAERS Safety Report 21417779 (Version 10)
Quarter: 2024Q1

REPORT INFORMATION
  Report Type: Spontaneous
  Country: US (occurrence: US)
  Receive Date: 20221006
  Receipt Date: 20240305
  Transmission Date: 20240410
  Serious: Yes (Life-Threatening, Other)
  Sender: FDA-Public Use
  Company Number: US-PFIZER INC-PV202200076593

PATIENT
  Age: 73 Year
  Sex: Female

DRUGS (1)
  1. IBRANCE [Suspect]
     Active Substance: PALBOCICLIB
     Indication: Neoplasm malignant
     Dosage: 75 MG
     Dates: end: 202302

REACTIONS (12)
  - Cardiac disorder [Unknown]
  - Circulatory collapse [Recovered/Resolved]
  - Gait disturbance [Unknown]
  - Fall [Unknown]
  - Tooth disorder [Unknown]
  - Amnesia [Unknown]
  - Fatigue [Unknown]
  - Myalgia [Unknown]
  - Injection site mass [Unknown]
  - Depression [Unknown]
  - Emotional disorder [Unknown]
  - Neoplasm progression [Unknown]
